FAERS Safety Report 9534641 (Version 1)
Quarter: 2013Q3

REPORT INFORMATION
  Report Type: Spontaneous
  Country: BR (occurrence: BR)
  Receive Date: 20130918
  Receipt Date: 20130918
  Transmission Date: 20140515
  Serious: Yes (Other)
  Sender: FDA-Public Use
  Company Number: BR-JNJFOC-20130907213

PATIENT
  Age: 54 Year
  Sex: Male

DRUGS (2)
  1. INFLIXIMAB, RECOMBINANT [Suspect]
     Indication: SACROILIITIS
     Route: 042
  2. MELOXICAM [Suspect]
     Indication: SACROILIITIS
     Route: 065

REACTIONS (2)
  - Renal cell carcinoma [Recovered/Resolved]
  - Hepatic steatosis [Unknown]
